FAERS Safety Report 23986176 (Version 1)
Quarter: 2024Q2

REPORT INFORMATION
  Report Type: Spontaneous
  Country: DE (occurrence: DE)
  Receive Date: 20240618
  Receipt Date: 20240618
  Transmission Date: 20240715
  Serious: Yes (Death)
  Sender: FDA-Public Use
  Company Number: DE-GERMAN-LIT/DEU/24/0008375

PATIENT
  Age: 78 Year
  Sex: Female

DRUGS (3)
  1. VORICONAZOLE [Suspect]
     Active Substance: VORICONAZOLE
     Indication: Fungal infection
     Dosage: UNK
     Route: 065
  2. MEROPENEM [Concomitant]
     Active Substance: MEROPENEM
     Indication: Nocardiosis
     Dosage: 1000 MILLIGRAM, FROM DAY?2 OF HOSPITALISATION
     Route: 065
  3. SULFAMETHOXAZOLE\TRIMETHOPRIM [Concomitant]
     Active Substance: SULFAMETHOXAZOLE\TRIMETHOPRIM
     Indication: Nocardiosis
     Dosage: 960 MILLIGRAM, TWO TIMES A DAY
     Route: 065

REACTIONS (2)
  - Condition aggravated [Fatal]
  - Drug ineffective [Fatal]
